FAERS Safety Report 22016830 (Version 1)
Quarter: 2023Q1

REPORT INFORMATION
  Report Type: Spontaneous
  Country: US (occurrence: US)
  Receive Date: 20230221
  Receipt Date: 20230221
  Transmission Date: 20230418
  Serious: Yes (Other)
  Sender: FDA-Public Use
  Company Number: US-ORGANON-O2302USA001537

PATIENT
  Age: 16 Year
  Sex: Female
  Weight: 58.05 kg

DRUGS (1)
  1. NEXPLANON [Suspect]
     Active Substance: ETONOGESTREL
     Indication: Contraception
     Dosage: 1 IMPLANT, 68 MG ONCE IN LEFT ARM
     Route: 059
     Dates: start: 20220105

REACTIONS (3)
  - Device dislocation [Not Recovered/Not Resolved]
  - Implant site pain [Unknown]
  - Medical device site discomfort [Recovering/Resolving]

NARRATIVE: CASE EVENT DATE: 20230213
